FAERS Safety Report 6269006-4 (Version None)
Quarter: 2009Q3

REPORT INFORMATION
  Report Type: 
  Country: None (occurrence: None)
  Receive Date: 20090715
  Receipt Date: 20090706
  Transmission Date: 20100115
  Serious: Yes (Other)
  Sender: FDA-Public Use
  Company Number: A0796728A

PATIENT
  Age: 45 Year
  Sex: Female

DRUGS (3)
  1. PAXIL [Suspect]
     Route: 048
  2. ANTIDEPRESSANT [Suspect]
  3. ALCOHOL [Suspect]

REACTIONS (5)
  - ALCOHOL POISONING [None]
  - DRUG INTERACTION [None]
  - HOMICIDE [None]
  - INTENTIONAL DRUG MISUSE [None]
  - SOMNOLENCE [None]
